FAERS Safety Report 8390664-2 (Version None)
Quarter: 2012Q2

REPORT INFORMATION
  Report Type: 
  Country: None (occurrence: None)
  Receive Date: 20120529
  Receipt Date: 20120523
  Transmission Date: 20120825
  Serious: Yes (Death)
  Sender: FDA-Public Use
  Company Number: US-BRISTOL-MYERS SQUIBB COMPANY-16487738

PATIENT
  Age: 57 Year
  Sex: Male

DRUGS (10)
  1. ABACAVIR [Suspect]
     Indication: HIV INFECTION
     Route: 048
     Dates: start: 20051120
  2. MINOXIDIL [Concomitant]
  3. REYATAZ [Suspect]
     Indication: HIV INFECTION
     Dosage: STARTED ART IN 2000
     Route: 048
     Dates: start: 20051120
  4. ZIDOVUDINE [Suspect]
     Indication: HIV INFECTION
     Route: 048
     Dates: start: 20051120
  5. LOVASTATIN [Concomitant]
  6. CLONIDINE [Concomitant]
  7. PHOSLO [Concomitant]
  8. LANTUS [Concomitant]
  9. RITONAVIR [Suspect]
     Indication: HIV INFECTION
     Route: 048
     Dates: start: 20051120
  10. HYDRALAZINE HCL [Concomitant]

REACTIONS (1)
  - SEPTIC SHOCK [None]
